FAERS Safety Report 20937885 (Version 5)
Quarter: 2022Q3

REPORT INFORMATION
  Report Type: Report from Study
  Country: US (occurrence: US)
  Receive Date: 20220609
  Receipt Date: 20220810
  Transmission Date: 20221027
  Serious: Yes (Hospitalization)
  Sender: FDA-Public Use
  Company Number: US-INSMED, INC.-2022-00889-US

PATIENT
  Sex: Male
  Weight: 124.72 kg

DRUGS (2)
  1. ARIKAYCE [Suspect]
     Active Substance: AMIKACIN
     Indication: Mycobacterium fortuitum infection
     Dosage: 590 MILLIGRAM, QD
     Route: 055
     Dates: start: 20220405, end: 2022
  2. ARIKAYCE [Suspect]
     Active Substance: AMIKACIN
     Indication: Mycobacterium avium complex infection
     Dosage: 590 MILLIGRAM, QD
     Route: 055
     Dates: start: 2022, end: 2022

REACTIONS (8)
  - Hospitalisation [Unknown]
  - Hospitalisation [Unknown]
  - Hospitalisation [Unknown]
  - Oropharyngeal pain [Unknown]
  - Product dose omission issue [Unknown]
  - Therapy interrupted [Unknown]
  - Device issue [Unknown]
  - Drug ineffective [None]
